FAERS Safety Report 22247621 (Version 1)
Quarter: 2023Q2

REPORT INFORMATION
  Report Type: Spontaneous
  Country: US (occurrence: US)
  Receive Date: 20230425
  Receipt Date: 20230425
  Transmission Date: 20230722
  Serious: Yes (Other)
  Sender: FDA-Public Use
  Company Number: US-TOPROL-2022000263

PATIENT
  Age: 80 Year
  Sex: Female
  Weight: 67 kg

DRUGS (2)
  1. TOPROL XL [Suspect]
     Active Substance: METOPROLOL SUCCINATE
     Indication: Hypertension
     Route: 065
  2. TOPROL XL [Suspect]
     Active Substance: METOPROLOL SUCCINATE
     Route: 065

REACTIONS (9)
  - Syncope [Unknown]
  - Food allergy [Not Recovered/Not Resolved]
  - COVID-19 [Recovering/Resolving]
  - Hypotension [Recovering/Resolving]
  - Intentional dose omission [Unknown]
  - Asthenia [Unknown]
  - Peripheral coldness [Unknown]
  - Drug withdrawal syndrome [Unknown]
  - Malaise [Recovering/Resolving]

NARRATIVE: CASE EVENT DATE: 20220801
